FAERS Safety Report 19729405 (Version 1)
Quarter: 2021Q3

REPORT INFORMATION
  Report Type: Spontaneous
  Country: US (occurrence: US)
  Receive Date: 20210821
  Receipt Date: 20210821
  Transmission Date: 20211014
  Serious: Yes (Other)
  Sender: FDA-Public Use
  Company Number: US-DRREDDYS-LIT/USA/21/0139093

PATIENT
  Age: 74 Year
  Sex: Male

DRUGS (2)
  1. ATORVASTATIN [Suspect]
     Active Substance: ATORVASTATIN
     Indication: HYPERLIPIDAEMIA
  2. COLCHICINE. [Suspect]
     Active Substance: COLCHICINE
     Indication: PERICARDIAL EFFUSION

REACTIONS (1)
  - Rhabdomyolysis [Unknown]
